FAERS Safety Report 12597880 (Version 2)
Quarter: 2016Q3

REPORT INFORMATION
  Report Type: Spontaneous
  Country: US (occurrence: US)
  Receive Date: 20160726
  Receipt Date: 20160728
  Transmission Date: 20161109
  Serious: Yes (Life-Threatening, Hospitalization)
  Sender: FDA-Public Use
  Company Number: US-CELGENEUS-USA-2016040078

PATIENT
  Age: 72 Year
  Sex: Male
  Weight: 76 kg

DRUGS (42)
  1. COLACE [Concomitant]
     Active Substance: DOCUSATE SODIUM
     Indication: CONSTIPATION
     Route: 048
     Dates: start: 20160205
  2. CREON [Concomitant]
     Active Substance: PANCRELIPASE AMYLASE\PANCRELIPASE LIPASE\PANCRELIPASE PROTEASE
     Indication: PRODUCT USED FOR UNKNOWN INDICATION
     Dosage: 120,000-24,000-76,000 UNIT
     Route: 048
     Dates: start: 20160111
  3. PROTONIX [Concomitant]
     Active Substance: PANTOPRAZOLE SODIUM
     Indication: GASTROOESOPHAGEAL REFLUX DISEASE
     Dosage: 81 MILLIGRAM
     Route: 048
     Dates: start: 20160229
  4. FLOMAX [Concomitant]
     Active Substance: TAMSULOSIN HYDROCHLORIDE
     Indication: POLLAKIURIA
  5. CIALIS [Concomitant]
     Active Substance: TADALAFIL
     Indication: URINARY RETENTION
     Route: 065
     Dates: start: 20160229, end: 20160406
  6. VANCOMYCIN [Concomitant]
     Active Substance: VANCOMYCIN
     Indication: PNEUMONIA
     Route: 065
     Dates: start: 20160203, end: 20160204
  7. GEMCITABINE [Suspect]
     Active Substance: GEMCITABINE\GEMCITABINE HYDROCHLORIDE
     Indication: PANCREATIC CARCINOMA METASTATIC
     Dosage: 1000
     Route: 065
     Dates: start: 20160125
  8. ZOFRAN [Concomitant]
     Active Substance: ONDANSETRON HYDROCHLORIDE
     Indication: PROPHYLAXIS OF NAUSEA AND VOMITING
     Route: 048
     Dates: start: 20160125
  9. ULTRAM [Concomitant]
     Active Substance: TRAMADOL HYDROCHLORIDE
     Indication: ORAL PAIN
  10. GEMCITABINE [Suspect]
     Active Substance: GEMCITABINE\GEMCITABINE HYDROCHLORIDE
     Dosage: 1000
     Route: 065
     Dates: start: 20160307, end: 20160307
  11. GEMCITABINE [Suspect]
     Active Substance: GEMCITABINE\GEMCITABINE HYDROCHLORIDE
     Dosage: 990
     Route: 065
     Dates: start: 20160321
  12. ZOFRAN [Concomitant]
     Active Substance: ONDANSETRON HYDROCHLORIDE
     Indication: VOMITING
  13. CORTISONE [Concomitant]
     Active Substance: CORTISONE\HYDROCORTISONE
     Indication: CONTRAST MEDIA REACTION
     Dosage: 25 PERCENT
     Route: 065
     Dates: start: 20160116
  14. PERFLUTREN LIPID MICROSPHERE [Concomitant]
     Indication: SCAN WITH CONTRAST
     Route: 065
     Dates: start: 20160311
  15. PREDNISONE. [Concomitant]
     Active Substance: PREDNISONE
     Indication: CONTRAST MEDIA REACTION
     Route: 065
     Dates: start: 20160116, end: 20160120
  16. ABRAXANE [Suspect]
     Active Substance: PACLITAXEL
     Indication: PANCREATIC CARCINOMA METASTATIC
     Dosage: 125
     Route: 041
     Dates: start: 20160125, end: 20160307
  17. DEMCIZUMAB [Suspect]
     Active Substance: DEMCIZUMAB
     Indication: PANCREATIC CARCINOMA METASTATIC
     Route: 065
     Dates: start: 20160125, end: 20160307
  18. ASPIRIN. [Concomitant]
     Active Substance: ASPIRIN
     Indication: PRODUCT USED FOR UNKNOWN INDICATION
     Route: 048
  19. LIPITOR [Concomitant]
     Active Substance: ATORVASTATIN CALCIUM
     Indication: LIPIDS
     Route: 048
  20. TESTOSTERONE. [Concomitant]
     Active Substance: TESTOSTERONE
     Indication: PRODUCT USED FOR UNKNOWN INDICATION
     Dosage: 2 APPLICATIONS 1.25G/ACTUATION
     Route: 061
  21. COMPAZINE [Concomitant]
     Active Substance: PROCHLORPERAZINE MALEATE
     Indication: NAUSEA
     Route: 065
     Dates: start: 20160125
  22. METHYLPREDNISOLONE. [Concomitant]
     Active Substance: METHYLPREDNISOLONE
     Indication: STEROID THERAPY
     Route: 065
     Dates: start: 20160119, end: 20160120
  23. BACTRIM [Concomitant]
     Active Substance: SULFAMETHOXAZOLE\TRIMETHOPRIM
     Indication: CELLULITIS
     Route: 065
     Dates: start: 20160303, end: 20160311
  24. SPIRONOLACTONE. [Concomitant]
     Active Substance: SPIRONOLACTONE
     Indication: ASCITES
     Route: 065
     Dates: start: 20160215
  25. CLARITIN [Concomitant]
     Active Substance: LORATADINE
     Indication: MULTIPLE ALLERGIES
     Route: 048
     Dates: end: 20160215
  26. PROTONIX [Concomitant]
     Active Substance: PANTOPRAZOLE SODIUM
     Indication: GASTROOESOPHAGEAL REFLUX DISEASE
     Route: 065
     Dates: start: 20160311
  27. ABRAXANE [Suspect]
     Active Substance: PACLITAXEL
     Dosage: 125
     Route: 041
     Dates: start: 20160321
  28. ULTRAM [Concomitant]
     Active Substance: TRAMADOL HYDROCHLORIDE
     Indication: ORAL PAIN
  29. DUONEB [Concomitant]
     Active Substance: ALBUTEROL SULFATE\IPRATROPIUM BROMIDE
     Indication: WHEEZING
     Route: 065
     Dates: start: 20160205, end: 20160209
  30. LOVENOX [Concomitant]
     Active Substance: ENOXAPARIN SODIUM
     Indication: PROPHYLAXIS
     Route: 065
     Dates: start: 20160205, end: 20160209
  31. GEMCITABINE [Suspect]
     Active Substance: GEMCITABINE\GEMCITABINE HYDROCHLORIDE
     Dosage: 989.6
     Route: 065
     Dates: start: 20160229
  32. ALBUMIN HUMAN [Concomitant]
     Active Substance: ALBUMIN HUMAN
     Indication: HYPOALBUMINAEMIA
     Dosage: 300 MILLIGRAM
     Route: 065
     Dates: start: 20160314, end: 20160315
  33. ANDROGEL [Concomitant]
     Active Substance: TESTOSTERONE
     Indication: ANDROGEN DEFICIENCY
     Route: 065
  34. BENADRYL [Concomitant]
     Active Substance: DIPHENHYDRAMINE HYDROCHLORIDE
     Indication: PROPHYLAXIS
     Route: 065
     Dates: start: 20160116, end: 20160120
  35. CHLOROSEPTIC SPRAY [Concomitant]
     Indication: PRODUCT USED FOR UNKNOWN INDICATION
     Route: 048
     Dates: start: 20160311
  36. LASIX [Concomitant]
     Active Substance: FUROSEMIDE
     Indication: ASCITES
     Route: 065
     Dates: start: 20160215
  37. MAGNESIUM SULFATE. [Concomitant]
     Active Substance: MAGNESIUM SULFATE
     Indication: PRODUCT USED FOR UNKNOWN INDICATION
     Route: 065
     Dates: start: 20160314, end: 20160315
  38. GEMCITABINE [Suspect]
     Active Substance: GEMCITABINE\GEMCITABINE HYDROCHLORIDE
     Dosage: 1000
     Route: 065
     Dates: start: 20160328
  39. DEMCIZUMAB [Suspect]
     Active Substance: DEMCIZUMAB
     Route: 065
     Dates: start: 20160321
  40. FLOMAX [Concomitant]
     Active Substance: TAMSULOSIN HYDROCHLORIDE
     Indication: PROSTATOMEGALY
     Dosage: 20 MILLIGRAM
     Route: 048
  41. ULTRAM [Concomitant]
     Active Substance: TRAMADOL HYDROCHLORIDE
     Indication: PAIN
     Route: 048
     Dates: start: 20160125
  42. CEFEPIME [Concomitant]
     Active Substance: CEFEPIME HYDROCHLORIDE
     Indication: PNEUMONIA
     Route: 065
     Dates: start: 20160203, end: 20160204

REACTIONS (1)
  - Dyspnoea [Recovered/Resolved]

NARRATIVE: CASE EVENT DATE: 20160311
